FAERS Safety Report 22063472 (Version 1)
Quarter: 2023Q1

REPORT INFORMATION
  Report Type: Spontaneous
  Country: GB (occurrence: GB)
  Receive Date: 20230306
  Receipt Date: 20230306
  Transmission Date: 20230417
  Serious: Yes (Other)
  Sender: FDA-Public Use
  Company Number: GB-SA-SAC20230222000322

PATIENT

DRUGS (2)
  1. ENOXAPARIN SODIUM [Suspect]
     Active Substance: ENOXAPARIN SODIUM
     Indication: Thrombosis prophylaxis
     Dosage: 40 MG
     Route: 058
  2. ENOXAPARIN SODIUM [Suspect]
     Active Substance: ENOXAPARIN SODIUM
     Dosage: 20 MG
     Route: 058

REACTIONS (11)
  - Seizure [Unknown]
  - Fall [Unknown]
  - Illness [Unknown]
  - Hypotension [Unknown]
  - Hypoperfusion [Unknown]
  - Creatinine renal clearance decreased [Unknown]
  - Haemoglobin decreased [Unknown]
  - Platelet count decreased [Unknown]
  - Balance disorder [Unknown]
  - Coordination abnormal [Unknown]
  - Asthenia [Unknown]
